FAERS Safety Report 10310605 (Version 5)
Quarter: 2014Q4

REPORT INFORMATION
  Report Type: Report from Study
  Country: FR (occurrence: None)
  Receive Date: 20140715
  Receipt Date: 20141209
  Transmission Date: 20150528
  Serious: Yes (Other)
  Sender: FDA-Public Use
  Company Number: 2014-FR-008549

PATIENT
  Age: 30 Year
  Sex: Male
  Weight: 86 kg

DRUGS (4)
  1. MODIODAL (MODAFINIL) [Concomitant]
  2. XYREM [Suspect]
     Active Substance: SODIUM OXYBATE
     Indication: CATAPLEXY
     Route: 048
     Dates: start: 20140603, end: 201406
  3. XYREM [Suspect]
     Active Substance: SODIUM OXYBATE
     Indication: NARCOLEPSY
     Route: 048
     Dates: start: 20140603, end: 201406
  4. PANTOPRAZOLE (PANTOPRAZOLE) [Concomitant]
     Active Substance: PANTOPRAZOLE SODIUM

REACTIONS (11)
  - Gastrooesophageal reflux disease [None]
  - Nausea [None]
  - Middle insomnia [None]
  - Condition aggravated [None]
  - Diplegia [None]
  - Cataplexy [None]
  - Product taste abnormal [None]
  - Dry eye [None]
  - Paraesthesia [None]
  - Hyperhidrosis [None]
  - Dry mouth [None]

NARRATIVE: CASE EVENT DATE: 20140607
